FAERS Safety Report 24701736 (Version 3)
Quarter: 2025Q1

REPORT INFORMATION
  Report Type: Report from Study
  Country: US (occurrence: US)
  Receive Date: 20241205
  Receipt Date: 20250326
  Transmission Date: 20250408
  Serious: No
  Sender: BRISTOL-MYERS SQUIBB COMPANY
  Company Number: US-BRISTOL-MYERS SQUIBB COMPANY-2024-180584

PATIENT
  Age: 10 Year
  Sex: Male
  Weight: 54.43 kg

DRUGS (2)
  1. CAMZYOS [Suspect]
     Active Substance: MAVACAMTEN
     Indication: Hypertrophic cardiomyopathy
     Route: 048
     Dates: start: 202411
  2. CAMZYOS [Suspect]
     Active Substance: MAVACAMTEN
     Indication: Heart disease congenital

REACTIONS (2)
  - Drug effect less than expected [Unknown]
  - Off label use [Unknown]
